FAERS Safety Report 6488080-3 (Version None)
Quarter: 2009Q4

REPORT INFORMATION
  Report Type: 
  Country: None (occurrence: None)
  Receive Date: 20091210
  Receipt Date: 20091128
  Transmission Date: 20100525
  Serious: Yes (Hospitalization, Other)
  Sender: FDA-Public Use
  Company Number: US-PFIZER INC-2009306009

PATIENT
  Sex: Male
  Weight: 73.5 kg

DRUGS (2)
  1. XANAX [Suspect]
     Route: 048
     Dates: start: 20090801, end: 20091116
  2. ADVIL [Concomitant]
     Indication: MYALGIA
     Dosage: FREQUENCY: 2X/DAY,

REACTIONS (3)
  - CHROMATURIA [None]
  - MICTURITION URGENCY [None]
  - WEIGHT DECREASED [None]
